FAERS Safety Report 21732898 (Version 2)
Quarter: 2023Q1

REPORT INFORMATION
  Report Type: Spontaneous
  Country: US (occurrence: US)
  Receive Date: 20221215
  Receipt Date: 20230301
  Transmission Date: 20230418
  Serious: No
  Sender: FDA-Public Use
  Company Number: US-VIIV HEALTHCARE LIMITED-US2022AMR185051

PATIENT
  Sex: Male
  Weight: 87.075 kg

DRUGS (3)
  1. CABOTEGRAVIR [Suspect]
     Active Substance: CABOTEGRAVIR
     Indication: Product used for unknown indication
     Dosage: 200 MG/ML
     Route: 030
     Dates: start: 20220722
  2. CABOTEGRAVIR [Suspect]
     Active Substance: CABOTEGRAVIR
     Dosage: 200 MG/ML
     Route: 030
     Dates: start: 20220816
  3. CABOTEGRAVIR [Suspect]
     Active Substance: CABOTEGRAVIR
     Dosage: 200 MG/ML
     Route: 030
     Dates: start: 20221011, end: 20221206

REACTIONS (3)
  - Injection site pain [Not Recovered/Not Resolved]
  - Influenza like illness [Unknown]
  - Condition aggravated [Unknown]

NARRATIVE: CASE EVENT DATE: 20220101
